FAERS Safety Report 5419001-X (Version None)
Quarter: 2007Q3

REPORT INFORMATION
  Report Type: 
  Country: None (occurrence: None)
  Receive Date: 20070817
  Receipt Date: 20070810
  Transmission Date: 20080115
  Serious: Yes (Congenital Anomaly)
  Sender: FDA-Public Use
  Company Number: US-PFIZER INC-2007066577

PATIENT
  Sex: Male
  Weight: 0.1 kg

DRUGS (2)
  1. VIRACEPT [Suspect]
     Dosage: DAILY DOSE:2500MG
     Route: 048
  2. COMBIVIR [Suspect]
     Dosage: DAILY DOSE:900MG
     Route: 048
     Dates: start: 20070215

REACTIONS (1)
  - POLYDACTYLY [None]
